FAERS Safety Report 15841556 (Version 1)
Quarter: 2018Q4

REPORT INFORMATION
  Report Type: Spontaneous
  Country: US (occurrence: US)
  Receive Date: 20181224
  Receipt Date: 20181224
  Transmission Date: 20190205
  Serious: Yes (Hospitalization)
  Sender: FDA-Public Use
  Company Number: None

PATIENT
  Age: 40 Year
  Sex: Female

DRUGS (1)
  1. ORENCIA [Suspect]
     Active Substance: ABATACEPT
     Route: 058
     Dates: start: 201804

REACTIONS (7)
  - Bronchitis [None]
  - Encephalopathy [None]
  - Fungal infection [None]
  - Systemic inflammatory response syndrome [None]
  - Blood potassium decreased [None]
  - Lactic acidosis [None]
  - Seizure [None]

NARRATIVE: CASE EVENT DATE: 20181221
